FAERS Safety Report 21530765 (Version 1)
Quarter: 2022Q4

REPORT INFORMATION
  Report Type: Spontaneous
  Country: CN (occurrence: CN)
  Receive Date: 20221031
  Receipt Date: 20221031
  Transmission Date: 20230112
  Serious: Yes (Hospitalization)
  Sender: FDA-Public Use
  Company Number: CN-PFIZER INC-PV202200091830

PATIENT
  Age: 84 Year
  Sex: Male

DRUGS (2)
  1. IRINOTECAN [Suspect]
     Active Substance: IRINOTECAN
     Indication: Neuroendocrine tumour of the lung
     Dosage: 100 MG ONCE DAILY, ON DAY 1 AND DAY 8
     Route: 041
     Dates: start: 20220928, end: 20220928
  2. BEVACIZUMAB [Concomitant]
     Active Substance: BEVACIZUMAB
     Indication: Neuroendocrine tumour of the lung
     Dosage: UNK, CYCLIC

REACTIONS (7)
  - Weight decreased [Unknown]
  - Decreased appetite [Unknown]
  - Hiccups [Unknown]
  - Nausea [Unknown]
  - Oropharyngeal pain [Unknown]
  - Chest pain [Unknown]
  - Diarrhoea [Recovering/Resolving]

NARRATIVE: CASE EVENT DATE: 20221006
